FAERS Safety Report 5022785-6 (Version None)
Quarter: 2006Q2

REPORT INFORMATION
  Report Type: 
  Country: None (occurrence: None)
  Receive Date: 20060609
  Receipt Date: 20060531
  Transmission Date: 20061013
  Serious: Yes (Hospitalization, Other)
  Sender: FDA-Public Use
  Company Number: GB-ABBOTT-06P-167-0334763-00

PATIENT
  Age: 44 Year
  Sex: Female
  Weight: 78 kg

DRUGS (2)
  1. REDUCTIL 15MG [Suspect]
     Indication: WEIGHT DECREASED
     Route: 048
     Dates: start: 20060510, end: 20060515
  2. CEPHALEXIN [Concomitant]
     Indication: URINARY TRACT INFECTION
     Route: 048
     Dates: start: 20060101

REACTIONS (1)
  - EPILEPSY [None]
